FAERS Safety Report 12193815 (Version 15)
Quarter: 2017Q2

REPORT INFORMATION
  Report Type: Report from Study
  Country: CA (occurrence: CA)
  Receive Date: 20160321
  Receipt Date: 20170621
  Transmission Date: 20170830
  Serious: Yes (Hospitalization, Other)
  Sender: FDA-Public Use
  Company Number: CA-ROCHE-1355924

PATIENT
  Age: 57 Year
  Sex: Female
  Weight: 56 kg

DRUGS (13)
  1. ACTEMRA [Suspect]
     Active Substance: TOCILIZUMAB
     Route: 042
     Dates: start: 20160322
  2. ACTEMRA [Suspect]
     Active Substance: TOCILIZUMAB
     Indication: RHEUMATOID ARTHRITIS
     Route: 058
     Dates: start: 20170412, end: 201705
  3. ACTEMRA [Suspect]
     Active Substance: TOCILIZUMAB
     Route: 042
     Dates: start: 20140903
  4. ACTONEL [Concomitant]
     Active Substance: RISEDRONATE SODIUM
  5. ACTEMRA [Suspect]
     Active Substance: TOCILIZUMAB
     Indication: RHEUMATOID ARTHRITIS
     Route: 042
     Dates: start: 20140207, end: 20160420
  6. METHOTREXATE. [Concomitant]
     Active Substance: METHOTREXATE
  7. DILANTIN [Suspect]
     Active Substance: PHENYTOIN
     Indication: SEIZURE
     Route: 048
     Dates: start: 201511, end: 20151221
  8. PANTOLOC [Concomitant]
     Active Substance: PANTOPRAZOLE SODIUM
  9. ELTROXIN [Concomitant]
     Active Substance: LEVOTHYROXINE
  10. RAMIPRIL. [Concomitant]
     Active Substance: RAMIPRIL
  11. VITAMIN B12 [Concomitant]
     Active Substance: CYANOCOBALAMIN
  12. PREDNISONE. [Concomitant]
     Active Substance: PREDNISONE
     Route: 065
  13. FOLIC ACID. [Concomitant]
     Active Substance: FOLIC ACID

REACTIONS (30)
  - Brain neoplasm [Not Recovered/Not Resolved]
  - Tooth fracture [Not Recovered/Not Resolved]
  - Vascular access complication [Unknown]
  - Device issue [Unknown]
  - Weight increased [Unknown]
  - Meningioma [Not Recovered/Not Resolved]
  - Fatigue [Not Recovered/Not Resolved]
  - Diarrhoea [Unknown]
  - Device related infection [Unknown]
  - Back pain [Unknown]
  - Skin abrasion [Unknown]
  - Localised infection [Unknown]
  - Seizure [Recovered/Resolved]
  - Arthralgia [Unknown]
  - Viral upper respiratory tract infection [Recovered/Resolved]
  - Device related infection [Recovered/Resolved]
  - Device occlusion [Unknown]
  - Hepatic enzyme increased [Recovered/Resolved]
  - Gastric disorder [Unknown]
  - Bacteraemia [Unknown]
  - Subcutaneous abscess [Unknown]
  - Pain in extremity [Unknown]
  - Device dislocation [Unknown]
  - Oral herpes [Recovering/Resolving]
  - Herpes zoster [Recovering/Resolving]
  - Vein disorder [Not Recovered/Not Resolved]
  - Cardiac infection [Unknown]
  - Loss of consciousness [Recovered/Resolved]
  - Tremor [Not Recovered/Not Resolved]
  - Peripheral swelling [Unknown]

NARRATIVE: CASE EVENT DATE: 20140218
